FAERS Safety Report 4782753-6 (Version None)
Quarter: 2005Q3

REPORT INFORMATION
  Report Type: 
  Country: None (occurrence: None)
  Receive Date: 20050926
  Receipt Date: 20050919
  Transmission Date: 20060218
  Serious: Yes (Other)
  Sender: FDA-Public Use
  Company Number: HQWYE530919SEP05

PATIENT
  Age: 38 Year
  Sex: Female
  Weight: 52.44 kg

DRUGS (5)
  1. EFFEXOR XR [Suspect]
     Dosage: 225 MGX PER 1 DAY, ORAL
     Route: 048
  2. LAMICTAL [Suspect]
     Indication: BIPOLAR II DISORDER
     Dosage: SEE IMAGE
     Route: 048
     Dates: start: 20050215, end: 20050101
  3. LAMICTAL [Suspect]
     Indication: BIPOLAR II DISORDER
     Dosage: SEE IMAGE
     Route: 048
     Dates: start: 20050101, end: 20050413
  4. SEROQUEL [Concomitant]
  5. KLONOPIN [Concomitant]

REACTIONS (7)
  - ABNORMAL DREAMS [None]
  - CONDITION AGGRAVATED [None]
  - DRUG INTERACTION [None]
  - HALLUCINATION [None]
  - NIGHT SWEATS [None]
  - PARASOMNIA [None]
  - SLEEP PARALYSIS [None]
